FAERS Safety Report 17676259 (Version 1)
Quarter: 2020Q2

REPORT INFORMATION
  Report Type: Spontaneous
  Country: BR (occurrence: BR)
  Receive Date: 20200416
  Receipt Date: 20200416
  Transmission Date: 20200714
  Serious: Yes (Hospitalization, Other)
  Sender: FDA-Public Use
  Company Number: BR-UCBSA-2020015324

PATIENT
  Sex: Female
  Weight: 21 kg

DRUGS (9)
  1. AMATO [Suspect]
     Active Substance: TOPIRAMATE
     Indication: SEIZURE
     Dosage: 12.5 MILLIGRAM, 2X/DAY (BID)
     Route: 048
     Dates: start: 201911
  2. VIMPAT [Suspect]
     Active Substance: LACOSAMIDE
     Indication: EPILEPSY
     Dosage: 1 MILLILITER, 2X/DAY (BID)
     Route: 048
     Dates: start: 20200404
  3. KEPPRA [Suspect]
     Active Substance: LEVETIRACETAM
     Dosage: 3 MILLILITER, 2X/DAY (BID)
     Route: 048
     Dates: start: 201807
  4. MIDAZOLAM. [Concomitant]
     Active Substance: MIDAZOLAM
     Indication: SEIZURE
     Dosage: UNK
     Dates: start: 201806
  5. KEPPRA [Suspect]
     Active Substance: LEVETIRACETAM
     Dosage: 5 MILLILITER, 2X/DAY (BID)
     Route: 048
     Dates: start: 201909
  6. TRILEPTAL [Concomitant]
     Active Substance: OXCARBAZEPINE
     Indication: SEIZURE
     Dosage: 5 MILLILITER, 2X/DAY (BID)
     Route: 048
     Dates: start: 201909
  7. FRISIUM [Concomitant]
     Active Substance: CLOBAZAM
     Indication: PRODUCT USED FOR UNKNOWN INDICATION
     Dosage: UNK
     Dates: start: 201807
  8. KEPPRA [Suspect]
     Active Substance: LEVETIRACETAM
     Indication: EPILEPSY
     Dosage: 1 MILLILITER, 2X/DAY (BID)
     Route: 048
     Dates: start: 201804, end: 2018
  9. KEPPRA [Suspect]
     Active Substance: LEVETIRACETAM
     Dosage: 7 MILLILITER, 2X/DAY (BID)
     Route: 048
     Dates: start: 201911

REACTIONS (5)
  - Eye swelling [Not Recovered/Not Resolved]
  - Decreased appetite [Unknown]
  - Intentional product misuse [Unknown]
  - Seizure [Recovered/Resolved]
  - Irritability [Unknown]

NARRATIVE: CASE EVENT DATE: 2018
